FAERS Safety Report 4285785-X (Version None)
Quarter: 2004Q1

REPORT INFORMATION
  Report Type: 
  Country: None (occurrence: None)
  Receive Date: 20040203
  Receipt Date: 20040122
  Transmission Date: 20041129
  Serious: Yes (Hospitalization)
  Sender: FDA-Public Use
  Company Number: APCDSS2003000053

PATIENT
  Age: 26 Year
  Sex: Male

DRUGS (6)
  1. ORTHOCLONE OKT3 [Suspect]
     Indication: COMPLICATIONS OF TRANSPLANT SURGERY
     Dosage: INTRAVENOUS DRIP
     Route: 041
  2. METHYLPREDNISOLONE [Suspect]
     Indication: COMPLICATIONS OF TRANSPLANT SURGERY
  3. STERIOD (CORTICOSTEROID NOS) UNSPECIFIED [Suspect]
     Indication: COMPLICATIONS OF TRANSPLANT SURGERY
     Dosage: STEROID PULSE PERFORMED ONCE, AND THEN TWICE WITH MUROMONAB-CD3 THERAPY
  4. CYCLOSPORINE [Concomitant]
  5. AZATHIOPRINE [Concomitant]
  6. ANTILYMPHOCYTE IMMUNOGLOBIN (ANTILYMPHOCYTE IMMUNOGLOBIN) [Concomitant]

REACTIONS (4)
  - ARTHRALGIA [None]
  - KIDNEY TRANSPLANT REJECTION [None]
  - MALAISE [None]
  - OSTEONECROSIS [None]
